FAERS Safety Report 15602422 (Version 3)
Quarter: 2019Q2

REPORT INFORMATION
  Report Type: Spontaneous
  Country: US (occurrence: US)
  Receive Date: 20181109
  Receipt Date: 20190415
  Transmission Date: 20190711
  Serious: Yes (Other)
  Sender: FDA-Public Use
  Company Number: US-SA-2015SA045574

PATIENT
  Age: 67 Year
  Sex: Female

DRUGS (6)
  1. LANTUS SOLOSTAR [Suspect]
     Active Substance: INSULIN GLARGINE
     Dosage: 60 U, BID
     Route: 065
  2. LANTUS SOLOSTAR [Suspect]
     Active Substance: INSULIN GLARGINE
     Dosage: 50 DF,BID
     Route: 065
  3. LANTUS SOLOSTAR [Suspect]
     Active Substance: INSULIN GLARGINE
     Indication: TYPE 2 DIABETES MELLITUS
     Dosage: 54 DF,BID
     Route: 065
     Dates: start: 2010
  4. LANTUS SOLOSTAR [Suspect]
     Active Substance: INSULIN GLARGINE
     Dosage: 54 DF,BID
     Route: 065
     Dates: start: 2010
  5. LANTUS SOLOSTAR [Suspect]
     Active Substance: INSULIN GLARGINE
     Dosage: 60 U, BID
     Route: 065
  6. LANTUS SOLOSTAR [Suspect]
     Active Substance: INSULIN GLARGINE
     Dosage: 54 DF,BID
     Route: 065
     Dates: start: 2010

REACTIONS (12)
  - Device defective [Unknown]
  - Product use issue [Unknown]
  - Device leakage [Unknown]
  - Myocardial infarction [Unknown]
  - Underdose [Unknown]
  - Injection site haemorrhage [Unknown]
  - Drug ineffective [Unknown]
  - Device issue [Unknown]
  - Blood glucose increased [Unknown]
  - Pharyngitis streptococcal [Unknown]
  - Insomnia [Unknown]
  - Device operational issue [Unknown]

NARRATIVE: CASE EVENT DATE: 2010
